FAERS Safety Report 18673576 (Version 1)
Quarter: 2020Q4

REPORT INFORMATION
  Report Type: Spontaneous
  Country: US (occurrence: US)
  Receive Date: 20201228
  Receipt Date: 20201228
  Transmission Date: 20210114
  Serious: No
  Sender: FDA-Public Use
  Company Number: US-PFIZER INC-2020508056

PATIENT
  Age: 71 Year
  Sex: Female

DRUGS (1)
  1. VYNDAMAX [Suspect]
     Active Substance: TAFAMIDIS
     Dosage: UNK
     Route: 048
     Dates: start: 2020

REACTIONS (2)
  - Dysphagia [Unknown]
  - Product use complaint [Unknown]

NARRATIVE: CASE EVENT DATE: 2020
